FAERS Safety Report 15939501 (Version 7)
Quarter: 2022Q4

REPORT INFORMATION
  Report Type: Spontaneous
  Country: US (occurrence: None)
  Receive Date: 20190208
  Receipt Date: 20221108
  Transmission Date: 20230113
  Serious: Yes (Hospitalization, Other)
  Sender: FDA-Public Use
  Company Number: 2018SF22327

PATIENT
  Age: 12635 Day
  Sex: Female
  Weight: 65.8 kg

DRUGS (109)
  1. NEXIUM [Suspect]
     Active Substance: ESOMEPRAZOLE MAGNESIUM
     Indication: Gastrooesophageal reflux disease
     Route: 048
     Dates: start: 20000411, end: 20160815
  2. NEXIUM [Suspect]
     Active Substance: ESOMEPRAZOLE MAGNESIUM
     Indication: Gastrooesophageal reflux disease
     Route: 048
     Dates: start: 20000411, end: 20160815
  3. NEXIUM [Suspect]
     Active Substance: ESOMEPRAZOLE MAGNESIUM
     Indication: Gastrooesophageal reflux disease
     Dosage: GENERIC
     Route: 048
     Dates: start: 2014, end: 2018
  4. NEXIUM [Suspect]
     Active Substance: ESOMEPRAZOLE MAGNESIUM
     Indication: Gastrooesophageal reflux disease
     Dosage: GENERIC
     Route: 048
     Dates: start: 2014, end: 2018
  5. NEXIUM [Suspect]
     Active Substance: ESOMEPRAZOLE MAGNESIUM
     Indication: Gastrooesophageal reflux disease
     Dosage: 40.0MG UNKNOWN
     Route: 048
     Dates: start: 2014, end: 2018
  6. NEXIUM [Suspect]
     Active Substance: ESOMEPRAZOLE MAGNESIUM
     Indication: Gastrooesophageal reflux disease
     Dosage: 40.0MG UNKNOWN
     Route: 048
     Dates: start: 2014, end: 2018
  7. NEXIUM [Suspect]
     Active Substance: ESOMEPRAZOLE MAGNESIUM
     Indication: Gastrooesophageal reflux disease
     Dosage: GENERIC40.0MG UNKNOWN
     Route: 048
     Dates: start: 2014
  8. NEXIUM [Suspect]
     Active Substance: ESOMEPRAZOLE MAGNESIUM
     Indication: Gastrooesophageal reflux disease
     Dosage: GENERIC40.0MG UNKNOWN
     Route: 048
     Dates: start: 2014
  9. NEXIUM [Suspect]
     Active Substance: ESOMEPRAZOLE MAGNESIUM
     Indication: Gastrooesophageal reflux disease
     Dosage: 20.0MG UNKNOWN
     Route: 048
     Dates: start: 20170816
  10. NEXIUM [Suspect]
     Active Substance: ESOMEPRAZOLE MAGNESIUM
     Indication: Gastrooesophageal reflux disease
     Dosage: 20.0MG UNKNOWN
     Route: 048
     Dates: start: 20170816
  11. NEXIUM [Suspect]
     Active Substance: ESOMEPRAZOLE MAGNESIUM
     Indication: Gastrooesophageal reflux disease
     Dosage: GENERIC40.0MG UNKNOWN
     Route: 048
     Dates: start: 2015
  12. NEXIUM [Suspect]
     Active Substance: ESOMEPRAZOLE MAGNESIUM
     Indication: Gastrooesophageal reflux disease
     Dosage: GENERIC40.0MG UNKNOWN
     Route: 048
     Dates: start: 2015
  13. PRILOSEC [Suspect]
     Active Substance: OMEPRAZOLE MAGNESIUM
     Indication: Gastrooesophageal reflux disease
     Route: 048
     Dates: start: 20000411, end: 20160815
  14. PRILOSEC [Suspect]
     Active Substance: OMEPRAZOLE MAGNESIUM
     Indication: Gastrooesophageal reflux disease
     Route: 048
     Dates: start: 20000411, end: 20160815
  15. PRILOSEC [Suspect]
     Active Substance: OMEPRAZOLE MAGNESIUM
     Indication: Gastrooesophageal reflux disease
     Dosage: GENERIC20.0MG UNKNOWN
     Route: 065
     Dates: start: 1991, end: 2018
  16. PRILOSEC [Suspect]
     Active Substance: OMEPRAZOLE MAGNESIUM
     Indication: Gastrooesophageal reflux disease
     Dosage: GENERIC20.0MG UNKNOWN
     Route: 065
     Dates: start: 1991, end: 2018
  17. PRILOSEC [Suspect]
     Active Substance: OMEPRAZOLE MAGNESIUM
     Indication: Gastrooesophageal reflux disease
     Dosage: 20.0MG UNKNOWN
     Route: 048
     Dates: start: 1991, end: 2018
  18. PRILOSEC [Suspect]
     Active Substance: OMEPRAZOLE MAGNESIUM
     Indication: Gastrooesophageal reflux disease
     Dosage: 20.0MG UNKNOWN
     Route: 048
     Dates: start: 1991, end: 2018
  19. PRILOSEC [Suspect]
     Active Substance: OMEPRAZOLE MAGNESIUM
     Indication: Gastrooesophageal reflux disease
     Dosage: GENERIC20.0MG UNKNOWN
     Route: 065
     Dates: start: 2002, end: 2018
  20. PRILOSEC [Suspect]
     Active Substance: OMEPRAZOLE MAGNESIUM
     Indication: Gastrooesophageal reflux disease
     Dosage: GENERIC20.0MG UNKNOWN
     Route: 065
     Dates: start: 2002, end: 2018
  21. PREVACID [Suspect]
     Active Substance: LANSOPRAZOLE
     Indication: Gastrooesophageal reflux disease
     Route: 065
     Dates: start: 20000411, end: 20160815
  22. PREVACID [Suspect]
     Active Substance: LANSOPRAZOLE
     Indication: Gastrooesophageal reflux disease
     Route: 065
     Dates: start: 20000411, end: 20160815
  23. PREVACID [Suspect]
     Active Substance: LANSOPRAZOLE
     Indication: Gastrooesophageal reflux disease
     Dosage: GENERIC30.0MG UNKNOWN
     Route: 065
     Dates: start: 1999, end: 2014
  24. PREVACID [Suspect]
     Active Substance: LANSOPRAZOLE
     Indication: Gastrooesophageal reflux disease
     Dosage: GENERIC30.0MG UNKNOWN
     Route: 065
     Dates: start: 1999, end: 2014
  25. PREVACID [Suspect]
     Active Substance: LANSOPRAZOLE
     Indication: Gastrooesophageal reflux disease
     Dosage: GENERIC30.0MG UNKNOWN
     Route: 065
     Dates: start: 1999, end: 2018
  26. PREVACID [Suspect]
     Active Substance: LANSOPRAZOLE
     Indication: Gastrooesophageal reflux disease
     Dosage: GENERIC30.0MG UNKNOWN
     Route: 065
     Dates: start: 1999, end: 2018
  27. PREVACID [Suspect]
     Active Substance: LANSOPRAZOLE
     Indication: Gastrooesophageal reflux disease
     Dosage: 30.0MG UNKNOWN
     Route: 065
     Dates: start: 1999, end: 2014
  28. PREVACID [Suspect]
     Active Substance: LANSOPRAZOLE
     Indication: Gastrooesophageal reflux disease
     Dosage: 30.0MG UNKNOWN
     Route: 065
     Dates: start: 1999, end: 2014
  29. PREVACID [Suspect]
     Active Substance: LANSOPRAZOLE
     Indication: Gastrooesophageal reflux disease
     Dosage: 30.0MG UNKNOWN
     Route: 065
     Dates: start: 2009, end: 2018
  30. PREVACID [Suspect]
     Active Substance: LANSOPRAZOLE
     Indication: Gastrooesophageal reflux disease
     Dosage: 30.0MG UNKNOWN
     Route: 065
     Dates: start: 2009, end: 2018
  31. PROTONIX [Suspect]
     Active Substance: PANTOPRAZOLE SODIUM
     Indication: Gastrooesophageal reflux disease
     Route: 065
     Dates: start: 20000411, end: 20160815
  32. PROTONIX [Suspect]
     Active Substance: PANTOPRAZOLE SODIUM
     Indication: Gastrooesophageal reflux disease
     Route: 065
     Dates: start: 20000411, end: 20160815
  33. PROTONIX [Suspect]
     Active Substance: PANTOPRAZOLE SODIUM
     Indication: Gastrooesophageal reflux disease
     Dosage: GENERIC
     Route: 065
     Dates: start: 1991, end: 2018
  34. PROTONIX [Suspect]
     Active Substance: PANTOPRAZOLE SODIUM
     Indication: Gastrooesophageal reflux disease
     Dosage: GENERIC
     Route: 065
     Dates: start: 1991, end: 2018
  35. PROTONIX [Suspect]
     Active Substance: PANTOPRAZOLE SODIUM
     Indication: Gastrooesophageal reflux disease
     Dosage: GENERIC
     Route: 065
     Dates: start: 2008, end: 2018
  36. PROTONIX [Suspect]
     Active Substance: PANTOPRAZOLE SODIUM
     Indication: Gastrooesophageal reflux disease
     Dosage: GENERIC
     Route: 065
     Dates: start: 2008, end: 2018
  37. PROTONIX [Suspect]
     Active Substance: PANTOPRAZOLE SODIUM
     Indication: Gastrooesophageal reflux disease
     Route: 065
     Dates: start: 2000, end: 2018
  38. PROTONIX [Suspect]
     Active Substance: PANTOPRAZOLE SODIUM
     Indication: Gastrooesophageal reflux disease
     Route: 065
     Dates: start: 2000, end: 2018
  39. ADVAIR HFA [Concomitant]
     Active Substance: FLUTICASONE PROPIONATE\SALMETEROL XINAFOATE
  40. ALBUTEROL [Concomitant]
     Active Substance: ALBUTEROL
  41. BUMEX [Concomitant]
     Active Substance: BUMETANIDE
     Indication: Swelling
     Dates: start: 1999, end: 2022
  42. TYLENOL [Concomitant]
     Active Substance: ACETAMINOPHEN
     Indication: Headache
     Dates: start: 1997, end: 2022
  43. VITAMIN D3 [Concomitant]
     Active Substance: CHOLECALCIFEROL
  44. GLUCAGON [Concomitant]
     Active Substance: GLUCAGON
  45. TIZANIDINE [Concomitant]
     Active Substance: TIZANIDINE
     Indication: Pain
     Dates: start: 2017, end: 2018
  46. MORPHINE [Concomitant]
     Active Substance: MORPHINE
     Indication: Pain
     Dates: start: 2004, end: 2022
  47. PREDNISONE [Concomitant]
     Active Substance: PREDNISONE
     Indication: Glucocorticoids increased
     Dates: start: 2000, end: 2018
  48. INSULIN NOS [Concomitant]
     Active Substance: INSULIN NOS
     Indication: Diabetes mellitus
     Dates: start: 1978, end: 2022
  49. METOCLOPRAMIDE [Concomitant]
     Active Substance: METOCLOPRAMIDE
     Indication: Abdominal pain upper
     Dates: start: 1999, end: 2022
  50. ASPIRIN [Concomitant]
     Active Substance: ASPIRIN
     Indication: Product communication issue
     Dates: start: 2000, end: 2022
  51. VITAMIN D [Concomitant]
     Active Substance: VITAMIN D NOS
     Indication: Hypovitaminosis
     Dates: start: 2016, end: 2022
  52. PEPCID [Concomitant]
     Active Substance: FAMOTIDINE
  53. ZANTAC [Concomitant]
     Active Substance: RANITIDINE HYDROCHLORIDE
     Indication: Hypertension
  54. TAGAMET [Concomitant]
     Active Substance: CIMETIDINE
  55. HYDROCODONE [Concomitant]
     Active Substance: HYDROCODONE
     Indication: Pain
     Dates: start: 1997, end: 2018
  56. ULTRAM [Concomitant]
     Active Substance: TRAMADOL HYDROCHLORIDE
  57. PROZAC [Concomitant]
     Active Substance: FLUOXETINE HYDROCHLORIDE
  58. LANOXIN [Concomitant]
     Active Substance: DIGOXIN
  59. ATORVASTATIN [Concomitant]
     Active Substance: ATORVASTATIN
  60. CYCLOBENZAPRINE [Concomitant]
     Active Substance: CYCLOBENZAPRINE
  61. CYMBALTA [Concomitant]
     Active Substance: DULOXETINE HYDROCHLORIDE
  62. ZOFRAN [Concomitant]
     Active Substance: ONDANSETRON HYDROCHLORIDE
  63. DICLOFENAC [Concomitant]
     Active Substance: DICLOFENAC
  64. TUMS [Concomitant]
     Active Substance: CALCIUM CARBONATE
  65. ROLAIDS [Concomitant]
     Active Substance: CALCIUM CARBONATE\MAGNESIUM HYDROXIDE
  66. ACETAMINOPHEN\HYDROCODONE [Concomitant]
     Active Substance: ACETAMINOPHEN\HYDROCODONE
  67. DURAGESIC [Concomitant]
     Active Substance: FENTANYL
  68. DIFLUCAN [Concomitant]
     Active Substance: FLUCONAZOLE
  69. SPIRONOLACTONE [Concomitant]
     Active Substance: SPIRONOLACTONE
  70. NYSTATIN [Concomitant]
     Active Substance: NYSTATIN
  71. FUROSEMIDE [Concomitant]
     Active Substance: FUROSEMIDE
  72. LEVAQUIN [Concomitant]
     Active Substance: LEVOFLOXACIN
  73. SODIUM CHLORIDE [Concomitant]
     Active Substance: SODIUM CHLORIDE
  74. PROMETHAZINE [Concomitant]
     Active Substance: PROMETHAZINE HYDROCHLORIDE
  75. NEURONTIN [Concomitant]
     Active Substance: GABAPENTIN
  76. REGRANEX [Concomitant]
     Active Substance: BECAPLERMIN
  77. LISINOPRIL [Concomitant]
     Active Substance: LISINOPRIL
  78. PROAMATINE [Concomitant]
     Active Substance: MIDODRINE HYDROCHLORIDE
  79. ALLEGRA-D [Concomitant]
     Active Substance: FEXOFENADINE HYDROCHLORIDE\PSEUDOEPHEDRINE HYDROCHLORIDE
  80. AMOXICILLIN [Concomitant]
     Active Substance: AMOXICILLIN
  81. GLUCAGEN HYPOKIT [Concomitant]
     Active Substance: GLUCAGON HYDROCHLORIDE
  82. CLARITHROMYC [Concomitant]
  83. ZITHROMAX [Concomitant]
     Active Substance: AZITHROMYCIN DIHYDRATE
  84. NATALCARE GLOSS [Concomitant]
  85. BUSPIRONE [Concomitant]
     Active Substance: BUSPIRONE HYDROCHLORIDE
  86. MIRCALCINE [Concomitant]
  87. METRONIDAZOLE [Concomitant]
     Active Substance: METRONIDAZOLE
  88. CLONIDINE [Concomitant]
     Active Substance: CLONIDINE
  89. LEVOTHYROXINE [Concomitant]
     Active Substance: LEVOTHYROXINE
  90. DEXTROSE [Concomitant]
     Active Substance: DEXTROSE
     Indication: Blood glucose decreased
     Dates: start: 1978, end: 2022
  91. VITAMINS [Concomitant]
     Active Substance: VITAMINS
  92. IRON [Concomitant]
     Active Substance: IRON
     Indication: Blood iron decreased
     Dates: start: 2014, end: 2018
  93. NITROFURANTOIN [Concomitant]
     Active Substance: NITROFURANTOIN
  94. CEFTRIAXONE [Concomitant]
     Active Substance: CEFTRIAXONE
  95. CEFUROXIME [Concomitant]
     Active Substance: CEFUROXIME
  96. CEFDINIR [Concomitant]
     Active Substance: CEFDINIR
  97. CEFPODOXIME [Concomitant]
     Active Substance: CEFPODOXIME
  98. TETRACYCLINE [Concomitant]
     Active Substance: TETRACYCLINE
  99. LUBIPROSTONE [Concomitant]
     Active Substance: LUBIPROSTONE
  100. OXYBUTINE [Concomitant]
     Indication: Hypertonic bladder
     Dates: start: 2010, end: 2022
  101. MULTI-VITAMIN [Concomitant]
     Active Substance: .ALPHA.-TOCOPHEROL ACETATE, DL-\ASCORBIC ACID\CYANOCOBALAMIN\FLUORIDE ION\FOLIC ACID\NIACIN\PYRIDOXI
     Indication: Product communication issue
     Dates: start: 2017, end: 2022
  102. AMOXICILLIN\CLAVULANATE POTASSIUM [Concomitant]
     Active Substance: AMOXICILLIN\CLAVULANATE POTASSIUM
  103. AMPICILLIN [Concomitant]
     Active Substance: AMPICILLIN
  104. TETRACYCLINE [Concomitant]
     Active Substance: TETRACYCLINE
  105. CEFAZOLIN [Concomitant]
     Active Substance: CEFAZOLIN
  106. GASTROGRAFIN [Concomitant]
     Active Substance: DIATRIZOATE MEGLUMINE\DIATRIZOATE SODIUM
  107. COENZYME Q-10 [Concomitant]
  108. ISOVUE [Concomitant]
     Active Substance: IOPAMIDOL
  109. METODOPRAMIDE [Concomitant]

REACTIONS (8)
  - Chronic kidney disease [Not Recovered/Not Resolved]
  - Renal failure [Unknown]
  - Nephrolithiasis [Unknown]
  - Nephrogenic anaemia [Unknown]
  - Acute kidney injury [Unknown]
  - Nephropathy [Not Recovered/Not Resolved]
  - End stage renal disease [Not Recovered/Not Resolved]
  - Tubulointerstitial nephritis [Unknown]

NARRATIVE: CASE EVENT DATE: 20050617
